FAERS Safety Report 10402313 (Version 1)
Quarter: 2014Q1

REPORT INFORMATION
  Report Type: Spontaneous
  Country: US (occurrence: None)
  Receive Date: 20130815
  Receipt Date: 20130815
  Transmission Date: 20141002
  Serious: Yes (Hospitalization, Other)
  Sender: FDA-Public Use
  Company Number: ADR-2013-00007

PATIENT
  Age: 51 Year
  Sex: Male

DRUGS (2)
  1. BACLOFEN INTRATHECAL 200 MCG/ML [Suspect]
     Indication: PAIN
  2. DILAUDID (HYDROMORPHONE) [Concomitant]

REACTIONS (5)
  - Fall [None]
  - Granuloma [None]
  - Pain [None]
  - Urinary retention [None]
  - Urinary hesitation [None]
